FAERS Safety Report 23238914 (Version 1)
Quarter: 2023Q4

REPORT INFORMATION
  Report Type: Spontaneous
  Country: US (occurrence: US)
  Receive Date: 20231129
  Receipt Date: 20231129
  Transmission Date: 20240110
  Serious: No
  Sender: FDA-Public Use
  Company Number: US-SANDOZ-SDZ2023US013686

PATIENT
  Sex: Male
  Weight: 109.09 kg

DRUGS (5)
  1. FOLIC ACID [Suspect]
     Active Substance: FOLIC ACID
     Indication: Psoriasis
     Dosage: 1 MG
     Route: 065
  2. FOLIC ACID [Suspect]
     Active Substance: FOLIC ACID
     Dosage: UNK
     Route: 065
  3. METHOTREXATE [Suspect]
     Active Substance: METHOTREXATE
     Indication: Psoriasis
     Dosage: 2.5 MG
     Route: 065
  4. METHOTREXATE [Suspect]
     Active Substance: METHOTREXATE
     Dosage: 17.5 UNK, QW
     Route: 065
     Dates: start: 20230713, end: 20230717
  5. FOLIC ACID [Concomitant]
     Active Substance: FOLIC ACID
     Indication: Psoriasis
     Dosage: 1 MG 5 TABS ON FRIDAY TO MONDAY
     Route: 048
     Dates: start: 20230619, end: 20230717

REACTIONS (3)
  - Psoriasis [Unknown]
  - Alopecia [Recovered/Resolved]
  - Drug ineffective [Unknown]
